FAERS Safety Report 5894473-5 (Version None)
Quarter: 2008Q3

REPORT INFORMATION
  Report Type: 
  Country: None (occurrence: None)
  Receive Date: 20080923
  Receipt Date: 20080923
  Transmission Date: 20090109
  Serious: Yes (Hospitalization)
  Sender: FDA-Public Use
  Company Number: None

PATIENT
  Sex: Female
  Weight: 66.8 kg

DRUGS (2)
  1. CISPLATIN [Suspect]
     Dosage: 208 MG
  2. DOXORUBICIN HYDROCHLORIDE [Suspect]
     Dosage: 98 MG

REACTIONS (5)
  - DIARRHOEA [None]
  - ESCHERICHIA INFECTION [None]
  - NEUTROPENIA [None]
  - SHOCK [None]
  - VOMITING [None]
